FAERS Safety Report 4628652-1 (Version None)
Quarter: 2005Q2

REPORT INFORMATION
  Report Type: 
  Country: None (occurrence: None)
  Receive Date: 20050404
  Receipt Date: 20050321
  Transmission Date: 20051028
  Serious: Yes (Other)
  Sender: FDA-Public Use
  Company Number: A0551104A

PATIENT
  Age: 48 Year
  Sex: Female

DRUGS (1)
  1. CONTAC 12 HOUR [Suspect]
     Indication: UPPER RESPIRATORY TRACT INFECTION
     Dosage: ORAL
     Route: 048

REACTIONS (2)
  - HAEMORRHAGIC CEREBRAL INFARCTION [None]
  - SUBARACHNOID HAEMORRHAGE [None]
